FAERS Safety Report 5324109-3 (Version None)
Quarter: 2007Q2

REPORT INFORMATION
  Report Type: 
  Country: None (occurrence: None)
  Receive Date: 20070514
  Receipt Date: 20060530
  Transmission Date: 20071010
  Serious: No
  Sender: FDA-Public Use
  Company Number: A0607252A

PATIENT
  Age: 48 Year
  Sex: Male

DRUGS (5)
  1. NABUMETONE [Suspect]
     Indication: RHEUMATOID ARTHRITIS
     Dosage: 500MG THREE TIMES PER DAY
     Route: 048
     Dates: start: 20060301
  2. MORPHINE [Concomitant]
  3. LORCET-HD [Concomitant]
  4. SOMA [Concomitant]
  5. MS CONTIN [Concomitant]

REACTIONS (1)
  - DRUG INEFFECTIVE [None]
